FAERS Safety Report 8005784-1 (Version None)
Quarter: 2011Q4

REPORT INFORMATION
  Report Type: 
  Country: None (occurrence: None)
  Receive Date: 20111223
  Receipt Date: 20111215
  Transmission Date: 20120403
  Serious: Yes (Other)
  Sender: FDA-Public Use
  Company Number: US-AMGEN-USASP2011067069

PATIENT
  Age: 68 Year
  Sex: Female

DRUGS (17)
  1. PROLIA [Suspect]
     Indication: OSTEOPOROSIS POSTMENOPAUSAL
     Dates: start: 20110601, end: 20110101
  2. ASPIRIN [Concomitant]
  3. PERCOCET [Concomitant]
  4. LORAZEPAM [Concomitant]
  5. JANUVIA [Concomitant]
  6. GLIMEPIRIDE [Concomitant]
  7. TENORMIN [Concomitant]
  8. SYNTHROID [Concomitant]
  9. FUROSEMIDE [Concomitant]
  10. DOXAZOSIN MESYLATE [Concomitant]
  11. VITAMIN D [Concomitant]
  12. VASOTEC [Concomitant]
  13. PRILOSEC [Concomitant]
  14. FLUNISOLIDE [Concomitant]
  15. PRAVASTATIN [Concomitant]
  16. NOVOLIN 70/30 [Concomitant]
  17. NIFEDIPINE [Concomitant]

REACTIONS (2)
  - FEMUR FRACTURE [None]
  - IMPAIRED HEALING [None]
